FAERS Safety Report 5466987-3 (Version None)
Quarter: 2007Q3

REPORT INFORMATION
  Report Type: 
  Country: None (occurrence: None)
  Receive Date: 20070921
  Receipt Date: 20070921
  Transmission Date: 20080115
  Serious: Yes (Hospitalization)
  Sender: FDA-Public Use
  Company Number: None

PATIENT
  Age: 57 Year
  Sex: Male
  Weight: 74.4 kg

DRUGS (7)
  1. ZOMETA [Suspect]
     Dosage: 4MG  Q 90 DAYS  IV
     Route: 042
     Dates: start: 20070321
  2. ZOMETA [Suspect]
     Dosage: 4MG  Q 90 DAYS  IV
     Route: 042
     Dates: start: 20070613
  3. DECADRON [Concomitant]
  4. LISINOPRIL [Concomitant]
  5. ZANTAC [Concomitant]
  6. PHENYTONI ER [Concomitant]
  7. AVASTIN [Concomitant]

REACTIONS (1)
  - PULMONARY EMBOLISM [None]
